FAERS Safety Report 23281580 (Version 2)
Quarter: 2024Q3

REPORT INFORMATION
  Report Type: Report from Study
  Country: US (occurrence: US)
  Receive Date: 20231211
  Receipt Date: 20240905
  Transmission Date: 20241017
  Serious: Yes (Other)
  Sender: TAKEDA
  Company Number: US-TAKEDA-US201718232

PATIENT
  Sex: Male

DRUGS (1)
  1. HUMAN IMMUNOGLOBULIN G\HYALURONIDASE RECOMBINANT HUMAN [Suspect]
     Active Substance: HUMAN IMMUNOGLOBULIN G\HYALURONIDASE (HUMAN RECOMBINANT)
     Indication: Primary immunodeficiency syndrome
     Dosage: 37.5 GRAM, MONTHLY
     Route: 058

REACTIONS (6)
  - Prostate cancer [Unknown]
  - Infusion site discharge [Unknown]
  - COVID-19 [Unknown]
  - Fall [Unknown]
  - Joint dislocation [Unknown]
  - Dyspnoea [Unknown]
